FAERS Safety Report 6028850-9 (Version None)
Quarter: 2008Q4

REPORT INFORMATION
  Report Type: 
  Country: None (occurrence: None)
  Receive Date: 20081222
  Receipt Date: 20081024
  Transmission Date: 20090506
  Serious: No
  Sender: FDA-Public Use
  Company Number: ALL1-2008-03108

PATIENT
  Age: 15 Year
  Sex: Male
  Weight: 59.4 kg

DRUGS (2)
  1. VYVANSE [Suspect]
     Indication: ATTENTION DEFICIT/HYPERACTIVITY DISORDER
     Dosage: HALF OF A DISSOLVED 70MG CAPSULE, 1XDAY:QD, ORAL
     Route: 048
     Dates: start: 20081023
  2. PREVACID [Concomitant]

REACTIONS (3)
  - DRUG PRESCRIBING ERROR [None]
  - OEDEMA PERIPHERAL [None]
  - OFF LABEL USE [None]
